FAERS Safety Report 7234094-5 (Version None)
Quarter: 2011Q1

REPORT INFORMATION
  Report Type: 
  Country: None (occurrence: None)
  Receive Date: 20110119
  Receipt Date: 20101117
  Transmission Date: 20110831
  Serious: Yes (Other)
  Sender: FDA-Public Use
  Company Number: NL-AMGEN-NLDSP2011002976

PATIENT

DRUGS (3)
  1. ENBREL [Suspect]
     Indication: ANKYLOSING SPONDYLITIS
     Dosage: 50 MG, 1 TIMES PER 1 WK
     Route: 058
     Dates: start: 20100803
  2. PHENYLBUTAZONE [Concomitant]
     Indication: ANKYLOSING SPONDYLITIS
     Dosage: UNK
     Route: 048
  3. TRAMADOL [Concomitant]
     Dosage: WHEN NEEDED

REACTIONS (3)
  - DIZZINESS [None]
  - DYSPNOEA [None]
  - HYPERSENSITIVITY [None]
